FAERS Safety Report 21565642 (Version 2)
Quarter: 2022Q4

REPORT INFORMATION
  Report Type: Report from Study
  Country: IE (occurrence: IE)
  Receive Date: 20221108
  Receipt Date: 20221115
  Transmission Date: 20230113
  Serious: Yes (Other)
  Sender: FDA-Public Use
  Company Number: IE-TAKEDA-2022TUS036499

PATIENT
  Age: 70 Year
  Sex: Female

DRUGS (11)
  1. VEDOLIZUMAB [Suspect]
     Active Substance: VEDOLIZUMAB
     Indication: Colitis ulcerative
     Dosage: UNK
     Route: 065
  2. VEDOLIZUMAB [Suspect]
     Active Substance: VEDOLIZUMAB
     Indication: Colitis ulcerative
     Dosage: 108 MILLIGRAM
     Route: 058
     Dates: start: 20220408
  3. VEDOLIZUMAB [Suspect]
     Active Substance: VEDOLIZUMAB
     Dosage: 108 MILLIGRAM
     Route: 058
     Dates: start: 20220504
  4. ROSUVASTATIN [Concomitant]
     Active Substance: ROSUVASTATIN
     Dosage: 5 MILLIGRAM, QD
     Route: 050
  5. Cortiment [Concomitant]
     Dosage: 9 MILLIGRAM, QD
     Route: 050
  6. PLAQUENIL [Concomitant]
     Active Substance: HYDROXYCHLOROQUINE SULFATE
     Dosage: 200 MILLIGRAM, BID
     Route: 050
  7. ATENOMEL [Concomitant]
     Dosage: 50 MILLIGRAM, QD
     Route: 050
  8. LEVOTHYROXINE [Concomitant]
     Active Substance: LEVOTHYROXINE
     Dosage: 75 MILLIGRAM, QD
     Route: 050
  9. IRON [Concomitant]
     Active Substance: IRON
     Dosage: 305 MILLIGRAM, QD
     Route: 050
  10. ESOMEPRAZOLE [Concomitant]
     Active Substance: ESOMEPRAZOLE
     Dosage: 40 MILLIGRAM, QD
     Route: 050
  11. SIMPONI [Concomitant]
     Active Substance: GOLIMUMAB
     Dosage: 200 MILLIGRAM
     Route: 050

REACTIONS (10)
  - Hip arthroplasty [Recovered/Resolved]
  - Shoulder arthroplasty [Recovered/Resolved]
  - Osteoarthritis [Unknown]
  - Malaise [Unknown]
  - Urinary tract infection [Unknown]
  - Dizziness [Unknown]
  - Feeling cold [Unknown]
  - Arthralgia [Not Recovered/Not Resolved]
  - Cough [Unknown]
  - Fatigue [Unknown]
